FAERS Safety Report 15433409 (Version 1)
Quarter: 2018Q3

REPORT INFORMATION
  Report Type: Spontaneous
  Country: US (occurrence: US)
  Receive Date: 20180921
  Receipt Date: 20180921
  Transmission Date: 20181010
  Serious: No
  Sender: FDA-Public Use
  Company Number: None

PATIENT
  Age: 23 Year
  Sex: Female
  Weight: 90.72 kg

DRUGS (1)
  1. FERRIC GLUCONATE 250 MG/250 ML NS SANOFI [Suspect]
     Active Substance: SODIUM FERRIC GLUCONATE COMPLEX
     Indication: IRON DEFICIENCY ANAEMIA
     Route: 042

REACTIONS (4)
  - Urticaria [None]
  - Pregnancy [None]
  - Rash [None]
  - Premature labour [None]

NARRATIVE: CASE EVENT DATE: 20180608
